FAERS Safety Report 9753227 (Version 1)
Quarter: 2013Q4

REPORT INFORMATION
  Report Type: Spontaneous
  Country: US (occurrence: US)
  Receive Date: 20131213
  Receipt Date: 20131213
  Transmission Date: 20140711
  Serious: No
  Sender: FDA-Public Use
  Company Number: US-GILEAD-2010-0027635

PATIENT
  Sex: Female
  Weight: 98.88 kg

DRUGS (17)
  1. LETAIRIS [Suspect]
     Indication: PULMONARY ARTERIAL HYPERTENSION
     Route: 048
     Dates: start: 20091209
  2. LASIX [Concomitant]
  3. ALPHAGAN [Concomitant]
  4. ACEON [Concomitant]
  5. ASTELIN [Concomitant]
  6. PREDNISONE [Concomitant]
  7. TRAVATAN [Concomitant]
  8. INDAPAMIDE [Concomitant]
  9. LANTUS [Concomitant]
  10. POTASSIUM CHLORIDE [Concomitant]
  11. ZOCOR [Concomitant]
  12. NOVOLOG [Concomitant]
  13. SULFAMETHOXAZOLE [Concomitant]
  14. SPIRIVA [Concomitant]
  15. MULTIVITAMIN [Concomitant]
  16. PRILOSEC [Concomitant]
  17. CALCIUM +D [Concomitant]

REACTIONS (1)
  - Nasal dryness [Unknown]
